FAERS Safety Report 20747163 (Version 1)
Quarter: 2022Q2

REPORT INFORMATION
  Report Type: Spontaneous
  Country: NO (occurrence: NO)
  Receive Date: 20220425
  Receipt Date: 20220425
  Transmission Date: 20220720
  Serious: Yes (Other)
  Sender: FDA-Public Use
  Company Number: NO-TAKEDA-2022TUS026747

PATIENT

DRUGS (1)
  1. LISDEXAMFETAMINE DIMESYLATE [Suspect]
     Active Substance: LISDEXAMFETAMINE DIMESYLATE
     Indication: Product used for unknown indication
     Route: 065

REACTIONS (1)
  - Hepatitis [Unknown]
